FAERS Safety Report 24463672 (Version 1)
Quarter: 2024Q4

REPORT INFORMATION
  Report Type: Report from Study
  Country: US (occurrence: US)
  Receive Date: 20241018
  Receipt Date: 20241018
  Transmission Date: 20250115
  Serious: No
  Sender: ROCHE
  Company Number: US-ROCHE-3487035

PATIENT
  Age: 45 Year
  Sex: Female

DRUGS (6)
  1. XOLAIR [Suspect]
     Active Substance: OMALIZUMAB
     Indication: Chronic spontaneous urticaria
     Dosage: STRENGTH : 150 MG/ML
     Route: 058
  2. XOLAIR [Suspect]
     Active Substance: OMALIZUMAB
  3. NAPROXEN [Concomitant]
     Active Substance: NAPROXEN
  4. OXYCODONE [Concomitant]
     Active Substance: OXYCODONE
  5. WELLBUTRIN [Concomitant]
     Active Substance: BUPROPION HYDROCHLORIDE
  6. CODEINE [Concomitant]
     Active Substance: CODEINE

REACTIONS (2)
  - Hypertension [Unknown]
  - Depression [Unknown]
